FAERS Safety Report 10642775 (Version 1)
Quarter: 2014Q4

REPORT INFORMATION
  Report Type: Spontaneous
  Country: US (occurrence: None)
  Receive Date: 20141209
  Receipt Date: 20141209
  Transmission Date: 20150529
  Serious: Yes (Death)
  Sender: FDA-Public Use
  Company Number: None

PATIENT
  Sex: Female

DRUGS (1)
  1. NEXAVAR [Suspect]
     Active Substance: SORAFENIB
     Dates: start: 20140506

REACTIONS (5)
  - Renal haemorrhage [None]
  - Jaundice [None]
  - Hypophagia [None]
  - Multi-organ disorder [None]
  - Confusional state [None]
